FAERS Safety Report 17187999 (Version 1)
Quarter: 2019Q4

REPORT INFORMATION
  Report Type: Spontaneous
  Country: FR (occurrence: FR)
  Receive Date: 20191221
  Receipt Date: 20191221
  Transmission Date: 20200122
  Serious: Yes (Hospitalization)
  Sender: FDA-Public Use
  Company Number: FR-ACCORD-165432

PATIENT
  Age: 98 Year
  Sex: Female

DRUGS (2)
  1. LEVETIRACETAM. [Suspect]
     Active Substance: LEVETIRACETAM
     Indication: FACIAL PARALYSIS
     Route: 048
     Dates: start: 20190408, end: 20190413
  2. CLOBAZAM. [Suspect]
     Active Substance: CLOBAZAM
     Indication: FACIAL PARALYSIS
     Route: 048
     Dates: start: 20190408, end: 20190413

REACTIONS (2)
  - Fall [Unknown]
  - Off label use [Unknown]

NARRATIVE: CASE EVENT DATE: 20190410
